FAERS Safety Report 13563007 (Version 2)
Quarter: 2017Q2

REPORT INFORMATION
  Report Type: Report from Study
  Country: None (occurrence: CO)
  Receive Date: 20170519
  Receipt Date: 20170623
  Transmission Date: 20170830
  Serious: Yes (Hospitalization, Other)
  Sender: FDA-Public Use
  Company Number: CO-ABBVIE-17K-036-1980973-00

PATIENT
  Age: 69 Year
  Sex: Male

DRUGS (1)
  1. HUMIRA [Suspect]
     Active Substance: ADALIMUMAB
     Indication: RHEUMATOID ARTHRITIS
     Route: 058
     Dates: start: 20170215, end: 20170503

REACTIONS (7)
  - Furuncle [Not Recovered/Not Resolved]
  - Breast abscess [Unknown]
  - Muscle necrosis [Unknown]
  - Neoplasm [Not Recovered/Not Resolved]
  - Muscle abscess [Unknown]
  - Tuberculosis [Unknown]
  - Abscess [Unknown]

NARRATIVE: CASE EVENT DATE: 20170508
